FAERS Safety Report 20877402 (Version 2)
Quarter: 2022Q3

REPORT INFORMATION
  Report Type: Spontaneous
  Country: DO (occurrence: DO)
  Receive Date: 20220526
  Receipt Date: 20220706
  Transmission Date: 20221026
  Serious: No
  Sender: FDA-Public Use
  Company Number: DO-PFIZER INC-202200700266

PATIENT
  Sex: Female

DRUGS (1)
  1. GENOTROPIN [Suspect]
     Active Substance: SOMATROPIN
     Dosage: 8.48 MG, 1X/DAY

REACTIONS (2)
  - Device power source issue [Unknown]
  - Drug dose omission by device [Unknown]
